FAERS Safety Report 6705670-0 (Version None)
Quarter: 2010Q2

REPORT INFORMATION
  Report Type: 
  Country: None (occurrence: None)
  Receive Date: 20100503
  Receipt Date: 20100422
  Transmission Date: 20101027
  Serious: Yes (Hospitalization)
  Sender: FDA-Public Use
  Company Number: FR-JNJFOC-20100405424

PATIENT
  Age: 48 Year
  Sex: Female

DRUGS (28)
  1. TAVANIC [Suspect]
     Indication: INFLUENZA
     Route: 042
  2. HYDROCORTISONE [Suspect]
     Indication: INFLUENZA
     Route: 040
  3. BIVALIRUDIN [Concomitant]
     Route: 065
  4. ORGARAN [Concomitant]
     Route: 065
  5. ROCEPHIN [Concomitant]
     Route: 065
  6. ANAFRANIL [Concomitant]
     Route: 065
  7. BROMAZEPAM [Concomitant]
     Route: 065
  8. LODOZ [Concomitant]
     Route: 065
  9. HYPERIUM [Concomitant]
     Route: 065
  10. OSELTAMIVIR PHOSPHATE [Concomitant]
     Route: 065
  11. CLAFORAN [Concomitant]
     Route: 065
  12. NORADRENALINE [Concomitant]
     Route: 065
  13. HYPNOVEL [Concomitant]
     Route: 065
  14. SUFENTANIL CITRATE [Concomitant]
     Route: 065
  15. NIMBEX [Concomitant]
     Route: 065
  16. AXEPIM [Concomitant]
     Route: 065
  17. AMIKIN [Concomitant]
     Route: 065
  18. VANCOMYCIN [Concomitant]
     Route: 065
  19. MYAMBUTOL [Concomitant]
     Route: 065
  20. PIRILENE [Concomitant]
     Route: 065
  21. RIFADIN [Concomitant]
     Route: 065
  22. RIMIFON [Concomitant]
     Route: 065
  23. PAVULON [Concomitant]
     Route: 065
  24. CANCIDAS [Concomitant]
     Route: 065
  25. BACTRIM [Concomitant]
     Route: 065
  26. CLAVENTIN [Concomitant]
     Route: 065
  27. COLISTIMETHATE SODIUM [Concomitant]
     Route: 065
  28. AMOXICILLIN AND CLAVULANATE POTASSIUM [Concomitant]
     Route: 065

REACTIONS (4)
  - ACUTE RESPIRATORY DISTRESS SYNDROME [None]
  - MEDICATION ERROR [None]
  - PULMONARY EMBOLISM [None]
  - TENDON RUPTURE [None]
